FAERS Safety Report 20136564 (Version 1)
Quarter: 2021Q4

REPORT INFORMATION
  Report Type: Spontaneous
  Country: US (occurrence: None)
  Receive Date: 20211201
  Receipt Date: 20211201
  Transmission Date: 20220303
  Serious: No
  Sender: FDA-Public Use
  Company Number: None

PATIENT
  Sex: Female

DRUGS (1)
  1. INTERFERON [Suspect]
     Active Substance: INTERFERON

REACTIONS (2)
  - Illness [None]
  - Therapy cessation [None]
